FAERS Safety Report 25011258 (Version 4)
Quarter: 2025Q1

REPORT INFORMATION
  Report Type: Report from Study
  Country: DE (occurrence: DE)
  Receive Date: 20250226
  Receipt Date: 20250330
  Transmission Date: 20250409
  Serious: Yes (Hospitalization)
  Sender: ABBVIE
  Company Number: DE-ABBVIE-6115593

PATIENT
  Age: 61 Year
  Sex: Female

DRUGS (6)
  1. FOSCARBIDOPA\FOSLEVODOPA [Suspect]
     Active Substance: FOSCARBIDOPA\FOSLEVODOPA
     Indication: Parkinson^s disease
     Route: 058
     Dates: start: 202501, end: 202501
  2. FOSCARBIDOPA\FOSLEVODOPA [Suspect]
     Active Substance: FOSCARBIDOPA\FOSLEVODOPA
     Route: 058
     Dates: start: 202501, end: 202501
  3. FOSCARBIDOPA\FOSLEVODOPA [Suspect]
     Active Substance: FOSCARBIDOPA\FOSLEVODOPA
     Route: 058
     Dates: start: 20250128
  4. FOSCARBIDOPA\FOSLEVODOPA [Suspect]
     Active Substance: FOSCARBIDOPA\FOSLEVODOPA
     Route: 058
     Dates: start: 2025, end: 2025
  5. FOSCARBIDOPA\FOSLEVODOPA [Suspect]
     Active Substance: FOSCARBIDOPA\FOSLEVODOPA
     Route: 058
     Dates: start: 2025, end: 2025
  6. FOSCARBIDOPA\FOSLEVODOPA [Suspect]
     Active Substance: FOSCARBIDOPA\FOSLEVODOPA
     Route: 058
     Dates: start: 2025

REACTIONS (7)
  - On and off phenomenon [Not Recovered/Not Resolved]
  - On and off phenomenon [Recovering/Resolving]
  - Hypokinesia [Not Recovered/Not Resolved]
  - Posture abnormal [Not Recovered/Not Resolved]
  - Dyspnoea [Not Recovered/Not Resolved]
  - Movement disorder [Not Recovered/Not Resolved]
  - Loss of personal independence in daily activities [Not Recovered/Not Resolved]

NARRATIVE: CASE EVENT DATE: 20250101
